FAERS Safety Report 9292257 (Version 1)
Quarter: 2013Q2

REPORT INFORMATION
  Report Type: Spontaneous
  Country: US (occurrence: None)
  Receive Date: 20130515
  Receipt Date: 20130515
  Transmission Date: 20140414
  Serious: Yes (Death)
  Sender: FDA-Public Use
  Company Number: None

PATIENT
  Sex: Male

DRUGS (1)
  1. EPIVIR HBV [Suspect]
     Indication: HEPATITIS B
     Dosage: 100 MG QD  PO
     Route: 048
     Dates: start: 20130408

REACTIONS (1)
  - Death [None]
